FAERS Safety Report 21129913 (Version 8)
Quarter: 2022Q4

REPORT INFORMATION
  Report Type: Other
  Country: JP (occurrence: JP)
  Receive Date: 20220726
  Receipt Date: 20221215
  Transmission Date: 20230112
  Serious: Yes (Other)
  Sender: FDA-Public Use
  Company Number: JP-CHUGAI-2022027417

PATIENT
  Age: 49 Year
  Sex: Male
  Weight: 53 kg

DRUGS (3)
  1. VABYSMO [Suspect]
     Active Substance: FARICIMAB-SVOA
     Indication: Diabetic retinal oedema
     Dosage: STRENGTH:120MG/ML
     Route: 031
     Dates: start: 20220610
  2. MOXIFLOXACIN HYDROCHLORIDE [Concomitant]
     Active Substance: MOXIFLOXACIN HYDROCHLORIDE
     Dosage: UNK, TID
     Route: 065
     Dates: start: 20220608
  3. OPHMIC [Concomitant]
     Dosage: TWO OR THREE TIMES/DAY
     Route: 065
     Dates: start: 20220610

REACTIONS (1)
  - Retinal artery occlusion [Not Recovered/Not Resolved]

NARRATIVE: CASE EVENT DATE: 20220611
